FAERS Safety Report 24259716 (Version 1)
Quarter: 2024Q3

REPORT INFORMATION
  Report Type: Spontaneous
  Country: US (occurrence: US)
  Receive Date: 20240828
  Receipt Date: 20240828
  Transmission Date: 20241017
  Serious: No
  Sender: AMGEN
  Company Number: US-AMGEN-USASP2024169790

PATIENT
  Sex: Male

DRUGS (8)
  1. RAVICTI [Suspect]
     Active Substance: GLYCEROL PHENYLBUTYRATE
     Indication: Urea cycle disorder
     Dosage: 3.8 MILLILITER, TID, (4.18 G), (1.1 GRAMS/ML25M LBT)
     Route: 048
  2. PREDNISONE [Suspect]
     Active Substance: PREDNISONE
     Indication: Product used for unknown indication
     Dosage: 20 MILLIGRAM
     Route: 065
  3. VITAMIN D3 [Concomitant]
     Active Substance: CHOLECALCIFEROL
     Dosage: 10 MICROGRAM
  4. ARGININE [Concomitant]
     Active Substance: ARGININE
     Dosage: 1000 MILLIGRAM
  5. CITRULLINE [Concomitant]
     Active Substance: CITRULLINE
     Dosage: UNK
  6. ADDERALL [Concomitant]
     Active Substance: AMPHETAMINE ASPARTATE\AMPHETAMINE SULFATE\DEXTROAMPHETAMINE SACCHARATE\DEXTROAMPHETAMINE SULFATE
     Dosage: 10 MILLIGRAM
  7. ZENATANE [Concomitant]
     Active Substance: ISOTRETINOIN
     Dosage: 10 MILLIGRAM
  8. MINERALS\VITAMINS [Concomitant]
     Active Substance: MINERALS\VITAMINS
     Dosage: 1000 MILLIGRAM

REACTIONS (2)
  - Drug hypersensitivity [Unknown]
  - Psoriasis [Unknown]
